FAERS Safety Report 6968176-X (Version None)
Quarter: 2010Q3

REPORT INFORMATION
  Report Type: 
  Country: None (occurrence: None)
  Receive Date: 20100907
  Receipt Date: 20100402
  Transmission Date: 20110219
  Serious: No
  Sender: FDA-Public Use
  Company Number: US-TYCO HEALTHCARE/MALLINCKRODT-T201001026

PATIENT

DRUGS (2)
  1. MD-GASTROVIEW [Suspect]
     Dosage: 10 ML, SINGLE
     Dates: start: 20100301, end: 20100301
  2. MD-GASTROVIEW [Suspect]
     Dosage: 10 ML, SINGLE
     Dates: start: 20100301, end: 20100301

REACTIONS (2)
  - DISCOMFORT [None]
  - NAUSEA [None]
